FAERS Safety Report 8607012-2 (Version None)
Quarter: 2012Q3

REPORT INFORMATION
  Report Type: 
  Country: None (occurrence: None)
  Receive Date: 20120820
  Receipt Date: 20120808
  Transmission Date: 20120928
  Serious: Yes (Other)
  Sender: FDA-Public Use
  Company Number: GB-TEVA-353237ISR

PATIENT
  Sex: Female

DRUGS (1)
  1. COPAXONE [Suspect]
     Dosage: 20 MILLIGRAM DAILY;
     Route: 058

REACTIONS (5)
  - HYPERSENSITIVITY [None]
  - BLADDER DYSFUNCTION [None]
  - PAIN IN EXTREMITY [None]
  - MULTIPLE SCLEROSIS RELAPSE [None]
  - MUSCULAR WEAKNESS [None]
